FAERS Safety Report 23388043 (Version 1)
Quarter: 2024Q1

REPORT INFORMATION
  Report Type: Spontaneous
  Country: FR (occurrence: None)
  Receive Date: 20240110
  Receipt Date: 20240110
  Transmission Date: 20240410
  Serious: Yes (Hospitalization, Other)
  Sender: FDA-Public Use
  Company Number: 2024A005914

PATIENT
  Age: 6 Week
  Sex: Female
  Weight: 4.1 kg

DRUGS (1)
  1. BEYFORTUS [Suspect]
     Active Substance: NIRSEVIMAB-ALIP
     Dosage: 1 DF
     Route: 030
     Dates: start: 202310, end: 202310

REACTIONS (2)
  - Bronchiolitis [Recovered/Resolved]
  - Drug ineffective [Recovered/Resolved]

NARRATIVE: CASE EVENT DATE: 20231123
